FAERS Safety Report 10621246 (Version 4)
Quarter: 2015Q1

REPORT INFORMATION
  Report Type: Spontaneous
  Country: PL (occurrence: PL)
  Receive Date: 20141203
  Receipt Date: 20150226
  Transmission Date: 20150720
  Serious: Yes (Hospitalization, Other)
  Sender: FDA-Public Use
  Company Number: PL-AMGEN-POLSP2014093226

PATIENT
  Age: 17 Year
  Sex: Male
  Weight: 72 kg

DRUGS (3)
  1. ENBREL [Suspect]
     Active Substance: ETANERCEPT
     Indication: JUVENILE IDIOPATHIC ARTHRITIS
     Dosage: 50 MG, WEEKLY
     Route: 058
     Dates: start: 20101005, end: 20141009
  2. METHOTREXAT EBEWE                  /00113801/ [Suspect]
     Active Substance: METHOTREXATE SODIUM
     Indication: JUVENILE IDIOPATHIC ARTHRITIS
     Dosage: 15 MG, WEEKLY, 3X2 TABLETS A 2.5 MG EVERY 12 HOURS
     Route: 048
     Dates: start: 200310, end: 20141009
  3. METHOTREXAT EBEWE                  /00113801/ [Suspect]
     Active Substance: METHOTREXATE SODIUM
     Dosage: 20 UNK, QWK
     Route: 065
     Dates: start: 20141202

REACTIONS (4)
  - Hepatitis [Recovering/Resolving]
  - Aspartate aminotransferase increased [Recovered/Resolved]
  - Gamma-glutamyltransferase increased [Recovered/Resolved]
  - Alanine aminotransferase increased [Recovering/Resolving]

NARRATIVE: CASE EVENT DATE: 201401
